FAERS Safety Report 7130289-X (Version None)
Quarter: 2010Q4

REPORT INFORMATION
  Report Type: 
  Country: None (occurrence: None)
  Receive Date: 20101201
  Receipt Date: 20101124
  Transmission Date: 20110411
  Serious: Yes (Other)
  Sender: FDA-Public Use
  Company Number: US-PFIZER INC-2010063148

PATIENT
  Sex: Female
  Weight: 52 kg

DRUGS (2)
  1. MEDROXYPROGESTERONE ACETATE [Suspect]
     Indication: CONTRACEPTION
     Dosage: 150 MG, EVERY 11-13 WEEKS
     Route: 030
     Dates: start: 20091103, end: 20100420
  2. MEDROXYPROGESTERONE ACETATE [Suspect]
     Dosage: UNK
     Dates: start: 20091103

REACTIONS (7)
  - DRUG EXPOSURE DURING PREGNANCY [None]
  - DRUG INEFFECTIVE [None]
  - PREGNANCY WITH INJECTABLE CONTRACEPTIVE [None]
  - PREMATURE LABOUR [None]
  - PREMATURE RUPTURE OF MEMBRANES [None]
  - PRODUCT QUALITY ISSUE [None]
  - UNINTENDED PREGNANCY [None]
